FAERS Safety Report 17002230 (Version 5)
Quarter: 2020Q1

REPORT INFORMATION
  Report Type: Report from Study
  Country: CA (occurrence: NL)
  Receive Date: 20191106
  Receipt Date: 20200106
  Transmission Date: 20200409
  Serious: Yes (Hospitalization, Other)
  Sender: FDA-Public Use
  Company Number: NL-BEH-2019108985

PATIENT
  Age: 59 Year
  Sex: Female

DRUGS (4)
  1. HIZENTRA [Suspect]
     Active Substance: HUMAN IMMUNOGLOBULIN G
     Dosage: 10 MILLILITER, TOT
     Route: 058
     Dates: start: 20191021, end: 20191021
  2. OXYGEN. [Concomitant]
     Active Substance: OXYGEN
     Indication: ASTHMA
     Dosage: UNK, PRN
     Route: 065
  3. HIZENTRA [Suspect]
     Active Substance: HUMAN IMMUNOGLOBULIN G
     Indication: HYPOGAMMAGLOBULINAEMIA
     Dosage: 15 MILLILITER (3 GRAM), QW
     Route: 058
     Dates: start: 20170731
  4. HIZENTRA [Suspect]
     Active Substance: HUMAN IMMUNOGLOBULIN G
     Dosage: 5 MILLILITER, TOT
     Route: 058
     Dates: start: 20191021, end: 20191021

REACTIONS (7)
  - Lung disorder [Unknown]
  - Respiratory tract infection [Unknown]
  - Asthma [Recovering/Resolving]
  - Dyspnoea [Unknown]
  - Cough [Unknown]
  - Dyspnoea [Recovering/Resolving]
  - Pneumonia [Recovering/Resolving]

NARRATIVE: CASE EVENT DATE: 20191021
